FAERS Safety Report 6471796-2 (Version None)
Quarter: 2009Q4

REPORT INFORMATION
  Report Type: 
  Country: None (occurrence: None)
  Receive Date: 20091201
  Receipt Date: 20091109
  Transmission Date: 20100525
  Serious: Yes (Hospitalization)
  Sender: FDA-Public Use
  Company Number: M0900385

PATIENT
  Age: 79 Year
  Sex: Male

DRUGS (6)
  1. PACERONE [Suspect]
     Indication: ATRIAL FIBRILLATION
     Dosage: 3 IN 1 D, ORAL, 2 IN 1 D, ORAL, 1 IN 1 D, ORAL
     Route: 048
     Dates: start: 20090101, end: 20090101
  2. PACERONE [Suspect]
     Indication: ATRIAL FIBRILLATION
     Dosage: 3 IN 1 D, ORAL, 2 IN 1 D, ORAL, 1 IN 1 D, ORAL
     Route: 048
     Dates: start: 20090810, end: 20090101
  3. PACERONE [Suspect]
     Indication: ATRIAL FIBRILLATION
     Dosage: 3 IN 1 D, ORAL, 2 IN 1 D, ORAL, 1 IN 1 D, ORAL
     Route: 048
     Dates: start: 20090101
  4. ZPCPR (SIMVASTATIN) [Concomitant]
  5. NEURONTIN [Concomitant]
  6. ASPIRIN (AVETYLSALICYLIC ACID) [Concomitant]

REACTIONS (5)
  - ANAEMIA HAEMOLYTIC AUTOIMMUNE [None]
  - COOMBS TEST POSITIVE [None]
  - DYSPNOEA [None]
  - FATIGUE [None]
  - OEDEMA PERIPHERAL [None]
